FAERS Safety Report 19614829 (Version 1)
Quarter: 2021Q3

REPORT INFORMATION
  Report Type: Spontaneous
  Country: US (occurrence: US)
  Receive Date: 20210727
  Receipt Date: 20210727
  Transmission Date: 20211014
  Serious: Yes (Other)
  Sender: FDA-Public Use
  Company Number: US-UCBSA-2021035096

PATIENT
  Sex: Female

DRUGS (1)
  1. VIMPAT [Suspect]
     Active Substance: LACOSAMIDE
     Indication: PRODUCT USED FOR UNKNOWN INDICATION
     Dosage: 100 MILLIGRAM, 2X/DAY (BID)

REACTIONS (5)
  - Inability to afford medication [Unknown]
  - Lupus-like syndrome [Unknown]
  - Seizure [Unknown]
  - Fibromyalgia [Unknown]
  - Chronic obstructive pulmonary disease [Unknown]
